FAERS Safety Report 4881348-3 (Version None)
Quarter: 2005Q4

REPORT INFORMATION
  Report Type: 
  Country: None (occurrence: None)
  Receive Date: 20051212
  Receipt Date: 20050926
  Transmission Date: 20060501
  Serious: No
  Sender: FDA-Public Use
  Company Number: 2005-02016

PATIENT
  Age: 75 Year
  Sex: Male
  Weight: 73.9 kg

DRUGS (10)
  1. VELCADE [Suspect]
     Indication: MULTIPLE MYELOMA
     Dates: start: 20050901
  2. HYDROCODONE BITARTRATE [Concomitant]
  3. PREVACID [Concomitant]
  4. TYLENOL PM (DIPHENHYDRAMINE, PARACETAMOL) [Concomitant]
  5. ALLEGRA-D 12 HOUR [Concomitant]
  6. BENADRYL ^WARNER-LAMBERT^ /USA/ (DIPHENHYDRAMINE HYDROCHLORIDE) [Concomitant]
  7. MILK OF MAGNESIA TAB [Concomitant]
  8. DULCOLAX [Concomitant]
  9. TEGASEROD (TEGASEROD) [Concomitant]
  10. IMODIUM [Concomitant]

REACTIONS (2)
  - HYPOAESTHESIA [None]
  - PARAESTHESIA [None]
